FAERS Safety Report 14240610 (Version 8)
Quarter: 2018Q1

REPORT INFORMATION
  Report Type: Spontaneous
  Country: FR (occurrence: FR)
  Receive Date: 20171130
  Receipt Date: 20180118
  Transmission Date: 20180508
  Serious: Yes (Hospitalization, Other)
  Sender: FDA-Public Use
  Company Number: FR-PFIZER INC-2017512927

PATIENT
  Age: 70 Year
  Sex: Male

DRUGS (18)
  1. AOTAL [Suspect]
     Active Substance: ACAMPROSATE CALCIUM
     Dosage: 666 MG, 3X/DAY
     Route: 048
     Dates: start: 20171002, end: 20171023
  2. DOLIPRANE [Suspect]
     Active Substance: ACETAMINOPHEN
     Dosage: 1 G, 3X/DAY
     Route: 048
     Dates: end: 20171023
  3. ALLOPURINOL. [Suspect]
     Active Substance: ALLOPURINOL
     Dosage: 20 MG, 1X/DAY
     Route: 048
     Dates: end: 20171024
  4. VITAMIN B1 AND B6 [Concomitant]
     Active Substance: PYRIDOXINE HYDROCHLORIDE\THIAMINE HYDROCHLORIDE
     Dosage: UNK
  5. TRIATEC [Suspect]
     Active Substance: RAMIPRIL
     Dosage: 1.25 MG, 1X/DAY
     Route: 048
     Dates: end: 20171024
  6. LECTIL [Suspect]
     Active Substance: BETAHISTINE HYDROCHLORIDE
     Dosage: 24 MG, 2X/DAY
     Route: 048
     Dates: end: 20171023
  7. IXPRIM [Suspect]
     Active Substance: ACETAMINOPHEN\TRAMADOL HYDROCHLORIDE
     Dosage: 1 DF, 1X/DAY (37.5 MG/325 MG)
     Route: 048
     Dates: end: 20171023
  8. AOTAL [Suspect]
     Active Substance: ACAMPROSATE CALCIUM
     Dosage: 6 DF, 1X/DAY
     Route: 048
     Dates: start: 20171002, end: 20171023
  9. VITAMIN B1 AND B6 [Concomitant]
     Active Substance: PYRIDOXINE HYDROCHLORIDE\THIAMINE HYDROCHLORIDE
     Dosage: 2/DAY
  10. TANGANIL [Suspect]
     Active Substance: ACETYLLEUCINE
     Dosage: 2 DF, 1X/DAY
     Route: 048
     Dates: end: 20171023
  11. AUGMENTIN [Concomitant]
     Active Substance: AMOXICILLIN\CLAVULANATE POTASSIUM
     Indication: INFLUENZA LIKE ILLNESS
     Dosage: 1 DF, 2X/DAY
     Dates: start: 20171002
  12. ATENOLOL. [Suspect]
     Active Substance: ATENOLOL
     Dosage: 50 MG, 1X/DAY
     Route: 048
  13. TRANXENE [Suspect]
     Active Substance: CLORAZEPATE DIPOTASSIUM
     Dosage: 4 DF, 1X/DAY
     Route: 048
     Dates: start: 20171002, end: 20171002
  14. XARELTO [Suspect]
     Active Substance: RIVAROXABAN
     Indication: ATRIAL FIBRILLATION
     Dosage: 20 MG, 1X/DAY
     Route: 048
     Dates: end: 20171024
  15. LIPANTHYL [Suspect]
     Active Substance: FENOFIBRATE
     Dosage: 145 MG, 1X/DAY
     Route: 048
     Dates: end: 20171024
  16. AOTAL [Suspect]
     Active Substance: ACAMPROSATE CALCIUM
     Dosage: 2 DF, 3X/DAY
     Route: 048
     Dates: start: 20171002, end: 20171023
  17. TRANXENE [Suspect]
     Active Substance: CLORAZEPATE DIPOTASSIUM
     Dosage: 20 MG, 2X/DAY
     Route: 048
     Dates: start: 20171002, end: 20171024
  18. ASPIRIN. [Concomitant]
     Active Substance: ASPIRIN
     Dosage: 100 MG, 1X/DAY

REACTIONS (3)
  - Anticoagulation drug level above therapeutic [Recovered/Resolved]
  - Inappropriate schedule of drug administration [Unknown]
  - Hepatitis acute [Recovering/Resolving]

NARRATIVE: CASE EVENT DATE: 20171024
